FAERS Safety Report 6036044-6 (Version None)
Quarter: 2009Q1

REPORT INFORMATION
  Report Type: 
  Country: None (occurrence: None)
  Receive Date: 20090113
  Receipt Date: 20090107
  Transmission Date: 20090719
  Serious: Yes (Hospitalization)
  Sender: FDA-Public Use
  Company Number: JP-ABBOTT-09P-087-0496507-00

PATIENT
  Age: 24 Year
  Sex: Female

DRUGS (3)
  1. CLARITHROMYCIN [Suspect]
     Indication: HELICOBACTER INFECTION
     Dates: start: 20081118, end: 20081124
  2. LANSOPRAZOLE [Suspect]
     Indication: HELICOBACTER INFECTION
     Dates: start: 20081118, end: 20081124
  3. AMOXICILLIN [Suspect]
     Indication: HELICOBACTER INFECTION
     Dates: start: 20081118, end: 20081124

REACTIONS (1)
  - ERYTHEMA MULTIFORME [None]
